FAERS Safety Report 10606249 (Version 1)
Quarter: 2014Q4

REPORT INFORMATION
  Report Type: Spontaneous
  Country: US (occurrence: None)
  Receive Date: 20141121
  Receipt Date: 20141121
  Transmission Date: 20150529
  Serious: Yes (Hospitalization)
  Sender: FDA-Public Use
  Company Number: FK201405425

PATIENT
  Age: 51 Year
  Sex: Male

DRUGS (3)
  1. DORIPENEM [Concomitant]
     Active Substance: DORIPENEM
     Indication: PNEUMONIA
     Route: 042
  2. TIGECYCLINE [Suspect]
     Active Substance: TIGECYCLINE
     Indication: PNEUMONIA
     Route: 042
  3. COLISTIMETHATE [Suspect]
     Active Substance: COLISTIMETHATE SODIUM
     Indication: PNEUMONIA
     Route: 042

REACTIONS (5)
  - Renal tubular necrosis [None]
  - Neuromuscular blockade [None]
  - Apnoea [None]
  - Toxicity to various agents [None]
  - Encephalopathy [None]
